FAERS Safety Report 11026447 (Version 2)
Quarter: 2015Q2

REPORT INFORMATION
  Report Type: Spontaneous
  Country: FR (occurrence: FR)
  Receive Date: 20150414
  Receipt Date: 20150429
  Transmission Date: 20150821
  Serious: No
  Sender: FDA-Public Use
  Company Number: FR-009507513-1504FRA002311

PATIENT
  Age: 27 Month
  Sex: Male
  Weight: 17 kg

DRUGS (1)
  1. AERIUS [Suspect]
     Active Substance: DESLORATADINE
     Indication: PRURITUS
     Dosage: 2.5 ML, UNK
     Route: 048
     Dates: start: 20150331, end: 20150402

REACTIONS (2)
  - Overdose [Unknown]
  - Product use issue [Unknown]

NARRATIVE: CASE EVENT DATE: 20150331
